FAERS Safety Report 5743038-4 (Version None)
Quarter: 2008Q2

REPORT INFORMATION
  Report Type: 
  Country: None (occurrence: None)
  Receive Date: 20080519
  Receipt Date: 20080512
  Transmission Date: 20081010
  Serious: Yes (Hospitalization)
  Sender: FDA-Public Use
  Company Number: US-BAXTER-2008BH004954

PATIENT
  Age: 50 Year
  Sex: Male
  Weight: 70 kg

DRUGS (3)
  1. HEPARIN SODIUM [Suspect]
     Indication: PROPHYLAXIS
     Route: 033
  2. RENAGEL [Concomitant]
     Indication: RENAL FAILURE
     Dosage: DOSE UNIT:UNKNOWN
     Route: 065
  3. TUMS [Concomitant]
     Indication: DRUG USE FOR UNKNOWN INDICATION
     Dosage: DOSE UNIT:UNKNOWN
     Route: 048

REACTIONS (6)
  - CATHETER SITE INFECTION [None]
  - DEHYDRATION [None]
  - DIARRHOEA [None]
  - FUNGAL INFECTION [None]
  - NAUSEA [None]
  - VOMITING [None]
